FAERS Safety Report 11585809 (Version 1)
Quarter: 2015Q4

REPORT INFORMATION
  Report Type: Spontaneous
  Country: DE (occurrence: DE)
  Receive Date: 20151001
  Receipt Date: 20151001
  Transmission Date: 20160304
  Serious: Yes (Death, Hospitalization)
  Sender: FDA-Public Use
  Company Number: DE-TEVA-596674GER

PATIENT
  Age: 48 Year
  Sex: Male

DRUGS (3)
  1. ZOLPIDEM [Concomitant]
     Active Substance: ZOLPIDEM\ZOLPIDEM TARTRATE
     Dosage: 10 MILLIGRAM DAILY;
     Route: 048
  2. CITALOPRAM [Suspect]
     Active Substance: CITALOPRAM HYDROBROMIDE
     Dosage: 40 MILLIGRAM DAILY;
     Route: 048
  3. TRAZODON-NEURAXPHARM 100MG [Concomitant]
     Dosage: 100 MILLIGRAM DAILY;
     Route: 048

REACTIONS (1)
  - Completed suicide [Fatal]

NARRATIVE: CASE EVENT DATE: 20130317
